FAERS Safety Report 24383997 (Version 3)
Quarter: 2024Q4

REPORT INFORMATION
  Report Type: Report from Study
  Country: US (occurrence: US)
  Receive Date: 20241001
  Receipt Date: 20241217
  Transmission Date: 20250115
  Serious: Yes (Hospitalization)
  Sender: TAKEDA
  Company Number: US-TAKEDA-2024TUS006192

PATIENT
  Sex: Male

DRUGS (7)
  1. IDURSULFASE [Suspect]
     Active Substance: IDURSULFASE
     Indication: Mucopolysaccharidosis II
     Dosage: 12 MILLIGRAM, 1/WEEK
     Dates: start: 202311
  2. IDURSULFASE [Suspect]
     Active Substance: IDURSULFASE
     Dosage: 15 MILLIGRAM, 1/WEEK
  3. SODIUM CHLORATE [Concomitant]
     Active Substance: SODIUM CHLORATE
     Dosage: UNK
  4. EPINEPHRINE [Concomitant]
     Active Substance: EPINEPHRINE
     Dosage: UNK
  5. DIPHENHYDRAMINE [Concomitant]
     Active Substance: DIPHENHYDRAMINE
     Dosage: UNK
  6. LIDOCAINE\PRILOCAINE [Concomitant]
     Active Substance: LIDOCAINE\PRILOCAINE
     Dosage: UNK
  7. SOLU-CORTEF [Concomitant]
     Active Substance: HYDROCORTISONE SODIUM SUCCINATE
     Dosage: UNK

REACTIONS (5)
  - Influenza [Unknown]
  - Nasopharyngitis [Unknown]
  - Asthenia [Unknown]
  - Tremor [Unknown]
  - Hernia [Unknown]
